FAERS Safety Report 5939356-7 (Version None)
Quarter: 2008Q4

REPORT INFORMATION
  Report Type: 
  Country: None (occurrence: None)
  Receive Date: 20081103
  Receipt Date: 20081029
  Transmission Date: 20090506
  Serious: Yes (Hospitalization)
  Sender: FDA-Public Use
  Company Number: US-B.I. PHARMACEUTICALS,INC./RIDGEFIELD-2008-BP-12873BP

PATIENT
  Sex: Female
  Weight: 60 kg

DRUGS (35)
  1. CLONIDINE HCL [Suspect]
     Dates: start: 20020921
  2. PEGAPTANIB SODIUM [Suspect]
     Indication: MACULAR DEGENERATION
     Route: 042
     Dates: start: 20020130
  3. VITAMIN E [Concomitant]
     Dates: start: 20010101
  4. MULTI-VITAMINS [Concomitant]
     Dates: start: 19990101
  5. POTASSIUM CHLORIDE [Concomitant]
     Dates: start: 19990101
  6. QUININE [Concomitant]
     Dates: start: 19920101
  7. ZINC [Concomitant]
     Dates: start: 20010101
  8. TUMS [Concomitant]
     Dates: start: 20010101
  9. ZOLOFT [Concomitant]
     Dates: start: 20010101
  10. ACIPHEX [Concomitant]
     Dates: start: 20000101, end: 20020315
  11. METOPROLOL TARTRATE [Concomitant]
     Dates: start: 19990101, end: 20020315
  12. TRIAMTERENE AND HYDROCHLOROTHIAZIDE [Concomitant]
     Dates: start: 19990101, end: 20020315
  13. FLUARIX [Concomitant]
     Dates: start: 20020118
  14. MARCAINE [Concomitant]
     Dates: start: 20020118
  15. PHENYLEPHRINE [Concomitant]
     Dates: start: 20020118
  16. TROPICAMIDE [Concomitant]
     Dates: start: 20020118
  17. BETADINE SSL [Concomitant]
     Dates: start: 20020130
  18. XYLOCAINE [Concomitant]
     Dates: start: 20020130
  19. CILOXAN [Concomitant]
     Dates: start: 20020130, end: 20020313
  20. VISUDYNE [Concomitant]
     Dates: start: 20020226, end: 20020226
  21. BENADRYL [Concomitant]
     Dates: start: 20020226, end: 20020324
  22. PREVACID [Concomitant]
     Dates: start: 20020315, end: 20020320
  23. CLONIDINE [Concomitant]
     Dates: start: 20020316, end: 20020319
  24. TYLENOL [Concomitant]
     Dates: start: 20020316, end: 20020924
  25. VIOXX [Concomitant]
     Dates: start: 20020316, end: 20020924
  26. NORVASC [Concomitant]
     Dates: start: 20020317, end: 20020817
  27. ACIPHEX [Concomitant]
     Dates: start: 20020320, end: 20020908
  28. ASPIRIN [Concomitant]
     Dates: start: 20020415
  29. GENTAMYCIN SULFATE [Concomitant]
     Dates: start: 20020422
  30. PROTONIX [Concomitant]
     Dates: start: 20020918
  31. COLACE [Concomitant]
     Dates: start: 20020921, end: 20020924
  32. CARDURA [Concomitant]
     Dates: start: 20020921
  33. DARVOCET-N 100 [Concomitant]
     Dates: start: 20020923
  34. MIRALAX [Concomitant]
     Dates: start: 20020923
  35. AGENTS USED IN PHOTODYNAMIC THERAPY [Concomitant]
     Dates: start: 20020226, end: 20020226

REACTIONS (1)
  - HYPOTENSION [None]
